FAERS Safety Report 10447316 (Version 2)
Quarter: 2019Q2

REPORT INFORMATION
  Report Type: Spontaneous
  Country: CA (occurrence: CA)
  Receive Date: 20140911
  Receipt Date: 20190524
  Transmission Date: 20190711
  Serious: Yes (Hospitalization, Congenital Anomaly, Other)
  Sender: FDA-Public Use
  Company Number: CA-FRI-1000070527

PATIENT
  Weight: 2.6 kg

DRUGS (8)
  1. GABAPENTIN. [Suspect]
     Active Substance: GABAPENTIN
     Indication: EXPOSURE DURING PREGNANCY
     Dosage: 1800 MG, QD
     Route: 064
  2. METHADONE [Suspect]
     Active Substance: METHADONE HYDROCHLORIDE
     Indication: EXPOSURE DURING PREGNANCY
     Dosage: 70 MG, QD
     Route: 064
  3. ESCITALOPRAM OXALATE UNK [Suspect]
     Active Substance: ESCITALOPRAM OXALATE
     Indication: EXPOSURE DURING PREGNANCY
     Dosage: 20 MG, QD
     Route: 064
  4. RABEPRAZOLE [Suspect]
     Active Substance: RABEPRAZOLE
     Indication: EXPOSURE DURING PREGNANCY
     Dosage: UNK
     Route: 064
  5. BENZTROPINE. [Suspect]
     Active Substance: BENZTROPINE
     Indication: EXPOSURE DURING PREGNANCY
     Dosage: 1.5 MG, QD
     Route: 064
  6. QUETIAPINE. [Suspect]
     Active Substance: QUETIAPINE
     Indication: EXPOSURE DURING PREGNANCY
     Dosage: 300 MG, BID (300 MG SUSTAINED RELEASE AND 300 MG IMMEDIATE RELEASE)
     Route: 064
  7. ZOPICLONE [Suspect]
     Active Substance: ZOPICLONE
     Indication: EXPOSURE DURING PREGNANCY
     Dosage: UNK
     Route: 064
  8. NORTRIPTYLINE [Suspect]
     Active Substance: NORTRIPTYLINE
     Indication: EXPOSURE DURING PREGNANCY
     Dosage: 20 MG, QD
     Route: 064

REACTIONS (4)
  - Drug withdrawal syndrome neonatal [Unknown]
  - Foetal exposure during pregnancy [Unknown]
  - Trismus [Recovered/Resolved]
  - Premature baby [Unknown]
